FAERS Safety Report 6503775-0 (Version None)
Quarter: 2009Q4

REPORT INFORMATION
  Report Type: 
  Country: None (occurrence: None)
  Receive Date: 20091217
  Receipt Date: 20091208
  Transmission Date: 20100525
  Serious: Yes (Congenital Anomaly)
  Sender: FDA-Public Use
  Company Number: A0680357A

PATIENT
  Sex: Male

DRUGS (3)
  1. PAXIL [Suspect]
     Indication: DEPRESSION
     Dosage: 20MG PER DAY
     Dates: start: 20021001, end: 20030701
  2. PAROXETINE HCL [Suspect]
     Indication: DEPRESSION
     Dosage: 20MG PER DAY
     Dates: start: 20030701, end: 20050301
  3. VITAMIN TAB [Concomitant]

REACTIONS (4)
  - CARDIAC MURMUR [None]
  - CYST [None]
  - DRUG EXPOSURE DURING PREGNANCY [None]
  - TALIPES [None]
